FAERS Safety Report 4414382-8 (Version None)
Quarter: 2004Q2

REPORT INFORMATION
  Report Type: 
  Country: None (occurrence: None)
  Receive Date: 20040630
  Receipt Date: 20040302
  Transmission Date: 20050107
  Serious: No
  Sender: FDA-Public Use
  Company Number: 04P-163-0250455-00

PATIENT
  Age: 37 Year
  Sex: Female
  Weight: 62.5964 kg

DRUGS (8)
  1. HUMIRA [Suspect]
     Indication: RHEUMATOID ARTHRITIS
     Dosage: 40, 1 IN 2 WK, SUBCUTANEOUS
     Route: 058
     Dates: start: 20040216
  2. CELECOXIB [Concomitant]
  3. METHOTREXATE [Concomitant]
  4. CYCLOBENZAPRINE HYDROCHLORIDE [Concomitant]
  5. FOLIC ACID [Concomitant]
  6. OXYCODONE HCL [Concomitant]
  7. VICODIN [Concomitant]
  8. CALCIUM [Concomitant]

REACTIONS (2)
  - INJECTION SITE BURNING [None]
  - INJECTION SITE PAIN [None]
